FAERS Safety Report 12697612 (Version 1)
Quarter: 2016Q3

REPORT INFORMATION
  Report Type: Report from Study
  Country: BR (occurrence: BR)
  Receive Date: 20160830
  Receipt Date: 20160830
  Transmission Date: 20161109
  Serious: Yes (Hospitalization, Other)
  Sender: FDA-Public Use
  Company Number: PHHY2016BR117846

PATIENT
  Age: 77 Year
  Sex: Female
  Weight: 62 kg

DRUGS (1)
  1. EXELON PATCH [Suspect]
     Active Substance: RIVASTIGMINE
     Indication: DEMENTIA ALZHEIMER^S TYPE
     Dosage: PATCH 10 CM2
     Route: 062

REACTIONS (5)
  - Somnolence [Unknown]
  - Subdural haematoma [Recovering/Resolving]
  - Headache [Recovering/Resolving]
  - Hydrocephalus [Unknown]
  - Fall [Unknown]

NARRATIVE: CASE EVENT DATE: 20160610
